FAERS Safety Report 7543766-4 (Version None)
Quarter: 2011Q2

REPORT INFORMATION
  Report Type: 
  Country: None (occurrence: None)
  Receive Date: 20110613
  Receipt Date: 20040616
  Transmission Date: 20111010
  Serious: Yes (Hospitalization, Other)
  Sender: FDA-Public Use
  Company Number: PHHO2004JP08737

PATIENT
  Sex: Male
  Weight: 64 kg

DRUGS (7)
  1. MUCOSIL-10 [Concomitant]
     Indication: BRONCHITIS CHRONIC
     Dates: start: 19991109
  2. INFREE S [Concomitant]
     Indication: ARTHRITIS
     Dates: start: 20000613
  3. NIVADIL [Concomitant]
     Indication: HYPERTENSION
     Dates: start: 20020716, end: 20040227
  4. ASPIRIN [Concomitant]
     Indication: ANGINA PECTORIS
     Dates: start: 20030401
  5. FAMOTIDINE [Concomitant]
     Indication: GASTRITIS
     Dates: start: 19991109
  6. NITOROL [Concomitant]
     Indication: ANGINA PECTORIS
     Dates: start: 19991109
  7. DIOVAN [Suspect]
     Indication: HYPERTENSION
     Dosage: 80 MG, QD
     Route: 048
     Dates: start: 20030415, end: 20040227

REACTIONS (1)
  - APLASIA PURE RED CELL [None]
